FAERS Safety Report 15757716 (Version 3)
Quarter: 2020Q1

REPORT INFORMATION
  Report Type: Report from Study
  Country: CO (occurrence: CO)
  Receive Date: 20181225
  Receipt Date: 20200318
  Transmission Date: 20200409
  Serious: Yes (Hospitalization, Other)
  Sender: FDA-Public Use
  Company Number: CO-ASTELLAS-2018US054412

PATIENT
  Age: 53 Year
  Sex: Male
  Weight: 56 kg

DRUGS (5)
  1. NIFEDIPINE. [Concomitant]
     Active Substance: NIFEDIPINE
     Indication: BLOOD PRESSURE MEASUREMENT
     Route: 048
  2. METOPROLOL. [Concomitant]
     Active Substance: METOPROLOL
     Indication: BLOOD PRESSURE MEASUREMENT
     Route: 048
  3. MYCOPHENOLATE [Concomitant]
     Active Substance: MYCOPHENOLIC ACID
     Indication: RENAL TRANSPLANT
     Dosage: 1080 MG, TOTAL DOSE (2 CAPSULES OF 360 MG IN THE MORNING AND 1 CAPSULE OF 360 MG AT AFTERNOON )
     Route: 048
     Dates: start: 20150720
  4. TACROLIMUS. [Suspect]
     Active Substance: TACROLIMUS
     Indication: RENAL TRANSPLANT
     Dosage: 5 MG, ONCE DAILY ( 1 CAPSULE OF 5 MG)
     Route: 048
     Dates: start: 20150720
  5. CLONIDINE. [Concomitant]
     Active Substance: CLONIDINE
     Indication: BLOOD PRESSURE MEASUREMENT
     Route: 065

REACTIONS (8)
  - Blood potassium increased [Not Recovered/Not Resolved]
  - Blood creatine increased [Unknown]
  - Diarrhoea [Unknown]
  - Renal impairment [Unknown]
  - Blood creatinine increased [Not Recovered/Not Resolved]
  - Fluid retention [Unknown]
  - Blood creatinine increased [Not Recovered/Not Resolved]
  - Toxicity to various agents [Unknown]

NARRATIVE: CASE EVENT DATE: 20150720
